FAERS Safety Report 10812078 (Version 1)
Quarter: 2015Q1

REPORT INFORMATION
  Report Type: Spontaneous
  Country: US (occurrence: None)
  Receive Date: 20150213
  Receipt Date: 20150213
  Transmission Date: 20150721
  Serious: Yes (Disabling)
  Sender: FDA-Public Use
  Company Number: None

PATIENT
  Age: 27 Year
  Sex: Female
  Weight: 47.63 kg

DRUGS (5)
  1. EMERGENCE-C [Concomitant]
  2. CLARITIN-D 12 HOUR [Concomitant]
     Active Substance: LORATADINE\PSEUDOEPHEDRINE SULFATE
  3. ADVIL [Concomitant]
     Active Substance: IBUPROFEN
  4. BOTOX [Suspect]
     Active Substance: ONABOTULINUMTOXINA
     Indication: SKIN WRINKLING
     Dates: start: 20150210
  5. BOTOX [Suspect]
     Active Substance: ONABOTULINUMTOXINA
     Indication: SKIN COSMETIC PROCEDURE
     Dates: start: 20150210

REACTIONS (13)
  - Discomfort [None]
  - Oropharyngeal pain [None]
  - Impaired work ability [None]
  - Paranasal sinus discomfort [None]
  - Lacrimation increased [None]
  - Eye pruritus [None]
  - Cough [None]
  - Pyrexia [None]
  - Decreased appetite [None]
  - Head discomfort [None]
  - Nasal congestion [None]
  - Sneezing [None]
  - Incorrect route of drug administration [None]

NARRATIVE: CASE EVENT DATE: 20150210
